FAERS Safety Report 6540804-2 (Version None)
Quarter: 2010Q1

REPORT INFORMATION
  Report Type: 
  Country: None (occurrence: None)
  Receive Date: 20100118
  Receipt Date: 20100105
  Transmission Date: 20100710
  Serious: No
  Sender: FDA-Public Use
  Company Number: US-JNJFOC-20100101946

PATIENT
  Sex: Female
  Weight: 70.31 kg

DRUGS (8)
  1. SANDOZ FENTANYL TRANSDERMAL SYSTEM [Suspect]
     Indication: BACK PAIN
     Route: 062
  2. SANDOZ FENTANYL TRANSDERMAL SYSTEM [Suspect]
     Route: 062
  3. SANDOZ FENTANYL TRANSDERMAL SYSTEM [Suspect]
     Indication: NECK PAIN
     Route: 062
  4. KLONOPIN [Concomitant]
     Indication: ANXIETY
     Route: 048
  5. INDERAL [Concomitant]
     Indication: TACHYCARDIA
     Route: 048
  6. MOBIC [Concomitant]
     Indication: ANTIINFLAMMATORY THERAPY
     Route: 048
  7. DILAUDID [Concomitant]
     Indication: PAIN
     Route: 048
  8. UNKNOWN MEDICATION [Concomitant]
     Indication: IRRITABLE BOWEL SYNDROME
     Route: 048

REACTIONS (7)
  - AGITATION [None]
  - APPLICATION SITE EROSION [None]
  - APPLICATION SITE IRRITATION [None]
  - MEMORY IMPAIRMENT [None]
  - PRODUCT ADHESION ISSUE [None]
  - WITHDRAWAL SYNDROME [None]
  - WRONG TECHNIQUE IN DRUG USAGE PROCESS [None]
